FAERS Safety Report 5145988-9 (Version None)
Quarter: 2006Q4

REPORT INFORMATION
  Report Type: 
  Country: None (occurrence: None)
  Receive Date: 20061106
  Receipt Date: 20061106
  Transmission Date: 20070319
  Serious: Yes (Other)
  Sender: FDA-Public Use
  Company Number: None

PATIENT
  Age: 52 Year
  Sex: Male
  Weight: 95.2554 kg

DRUGS (2)
  1. GENERIC OXYCODONE ER [Suspect]
     Indication: ILL-DEFINED DISORDER
     Dosage: 20 MG Q 8 H PO
     Route: 048
     Dates: start: 20060930, end: 20061013
  2. GENERIC OXYCODONE ER [Suspect]
     Indication: POST LAMINECTOMY SYNDROME
     Dosage: 20 MG Q 8 H PO
     Route: 048
     Dates: start: 20060930, end: 20061013

REACTIONS (3)
  - DIARRHOEA [None]
  - HAEMORRHOIDAL HAEMORRHAGE [None]
  - THERAPY NON-RESPONDER [None]
